FAERS Safety Report 9216605 (Version 1)
Quarter: 2013Q2

REPORT INFORMATION
  Report Type: Spontaneous
  Country: US (occurrence: US)
  Receive Date: 20130408
  Receipt Date: 20130408
  Transmission Date: 20140414
  Serious: No
  Sender: FDA-Public Use
  Company Number: US-PFIZER INC-2013107389

PATIENT
  Age: 51 Year
  Sex: Female
  Weight: 58 kg

DRUGS (4)
  1. EFFEXOR XR [Suspect]
     Indication: DEPRESSION
     Dosage: 75 MG, 1X/DAY
     Route: 048
     Dates: start: 201303
  2. TRAZODONE [Concomitant]
     Dosage: 100 MG, UNK
  3. LITHIUM [Concomitant]
     Dosage: 300 MG, UNK
  4. RISPERIDONE [Concomitant]
     Dosage: 4 MG, UNK

REACTIONS (1)
  - Drug ineffective [Unknown]
